FAERS Safety Report 5754076-X (Version None)
Quarter: 2008Q2

REPORT INFORMATION
  Report Type: 
  Country: None (occurrence: None)
  Receive Date: 20080530
  Receipt Date: 20080523
  Transmission Date: 20081010
  Serious: Yes (Other)
  Sender: FDA-Public Use
  Company Number: PHHO2008US05400

PATIENT
  Sex: Female
  Weight: 67 kg

DRUGS (5)
  1. ZOLEDRONIC ACID [Suspect]
     Indication: METASTASES TO BONE
     Dosage: 4 MG, EVERY 28 DAYS
     Route: 042
     Dates: start: 20070320, end: 20080415
  2. VITAMIN D [Concomitant]
  3. CALCIUM [Concomitant]
  4. TAXOL [Concomitant]
     Indication: BREAST CANCER
  5. AVASTIN [Concomitant]
     Indication: BREAST CANCER

REACTIONS (6)
  - ERYTHEMA [None]
  - IMPAIRED HEALING [None]
  - MOUTH ULCERATION [None]
  - OSTEONECROSIS [None]
  - PAIN IN JAW [None]
  - SWELLING [None]
